FAERS Safety Report 5725549-0 (Version None)
Quarter: 2008Q2

REPORT INFORMATION
  Report Type: 
  Country: None (occurrence: None)
  Receive Date: 20080501
  Receipt Date: 20080424
  Transmission Date: 20081010
  Serious: Yes (Hospitalization, Other)
  Sender: FDA-Public Use
  Company Number: PHBS2008HU04329

PATIENT
  Age: 60 Year
  Sex: Female

DRUGS (3)
  1. METHYLPREDNISOLONE [Suspect]
     Indication: RENAL TRANSPLANT
  2. SIROLIMUS [Suspect]
     Indication: RENAL TRANSPLANT
  3. CYCLOSPORINE [Suspect]
     Indication: RENAL TRANSPLANT
     Dates: start: 19930101

REACTIONS (4)
  - DIABETES MELLITUS [None]
  - HYPERCALCAEMIA [None]
  - NON-HODGKIN'S LYMPHOMA [None]
  - RENAL MASS [None]
